FAERS Safety Report 7706855-7 (Version None)
Quarter: 2011Q3

REPORT INFORMATION
  Report Type: 
  Country: None (occurrence: None)
  Receive Date: 20110824
  Receipt Date: 20110810
  Transmission Date: 20111222
  Serious: Yes (Hospitalization)
  Sender: FDA-Public Use
  Company Number: US-GLAXOSMITHKLINE-A0873552A

PATIENT
  Age: 83 Year
  Sex: Female
  Weight: 95 kg

DRUGS (10)
  1. AVANDIA [Suspect]
     Indication: TYPE 2 DIABETES MELLITUS
     Dosage: 4MG TWICE PER DAY
     Route: 048
     Dates: start: 20050202, end: 20060731
  2. ZETIA [Concomitant]
  3. SYNTHROID [Concomitant]
  4. VIOXX [Concomitant]
  5. LANOXIN [Concomitant]
  6. METFORMIN HYDROCHLORIDE [Concomitant]
  7. AVANDAMET [Suspect]
     Indication: TYPE 2 DIABETES MELLITUS
     Route: 048
     Dates: start: 20021217, end: 20050202
  8. CARTIA XT [Concomitant]
  9. PAROXETINE HCL [Concomitant]
  10. XANAX [Concomitant]

REACTIONS (2)
  - MYOCARDIAL INFARCTION [None]
  - ACUTE CORONARY SYNDROME [None]
